FAERS Safety Report 4690437-8 (Version None)
Quarter: 2005Q2

REPORT INFORMATION
  Report Type: 
  Country: None (occurrence: None)
  Receive Date: 20050615
  Receipt Date: 20050426
  Transmission Date: 20051028
  Serious: Yes (Other)
  Sender: FDA-Public Use
  Company Number: PHBS2005JP06045

PATIENT
  Sex: Female

DRUGS (1)
  1. VOLTAREN [Suspect]
     Indication: PERIARTHRITIS
     Dosage: 1 DF/DAY
     Route: 062

REACTIONS (2)
  - APPLICATION SITE URTICARIA [None]
  - APPLICATION SITE VESICLES [None]
